FAERS Safety Report 12116450 (Version 1)
Quarter: 2016Q1

REPORT INFORMATION
  Report Type: Spontaneous
  Country: US (occurrence: US)
  Receive Date: 20160225
  Receipt Date: 20160225
  Transmission Date: 20160526
  Serious: Yes (Death, Other)
  Sender: FDA-Public Use
  Company Number: US-CELGENE-USA-2016023965

PATIENT

DRUGS (4)
  1. DEXAMETHASONE. [Suspect]
     Active Substance: DEXAMETHASONE
     Indication: PLASMA CELL MYELOMA
     Route: 065
  2. CYCLOPHOSPHAMIDE. [Suspect]
     Active Substance: CYCLOPHOSPHAMIDE
     Indication: PLASMA CELL MYELOMA
     Route: 065
  3. REVLIMID [Suspect]
     Active Substance: LENALIDOMIDE
     Indication: PLASMA CELL MYELOMA
     Route: 048
  4. BORTEZOMIB [Suspect]
     Active Substance: BORTEZOMIB
     Indication: PLASMA CELL MYELOMA
     Route: 065

REACTIONS (12)
  - Acute coronary syndrome [Unknown]
  - Febrile neutropenia [Unknown]
  - Neutropenia [Unknown]
  - Pancreatitis [Unknown]
  - Plasma cell myeloma [Unknown]
  - Insomnia [Unknown]
  - Upper respiratory tract infection [Unknown]
  - Hyperglycaemia [Unknown]
  - Death [Fatal]
  - Tumour lysis syndrome [Unknown]
  - Decreased appetite [Unknown]
  - Peripheral sensory neuropathy [Unknown]
